FAERS Safety Report 8109717-9 (Version None)
Quarter: 2012Q1

REPORT INFORMATION
  Report Type: 
  Country: None (occurrence: None)
  Receive Date: 20120202
  Receipt Date: 20120131
  Transmission Date: 20120608
  Serious: Yes (Hospitalization)
  Sender: FDA-Public Use
  Company Number: US-B.I. PHARMACEUTICALS,INC./RIDGEFIELD-2012-BP-01922BP

PATIENT
  Sex: Male

DRUGS (3)
  1. PRADAXA [Suspect]
     Dosage: 300 MG
     Route: 048
     Dates: start: 20111201
  2. PRADAXA [Suspect]
     Dosage: 300 MG
     Route: 048
     Dates: start: 20111101, end: 20111201
  3. PRADAXA [Suspect]
     Indication: ATRIAL FIBRILLATION
     Dosage: 300 MG
     Route: 048
     Dates: start: 20110103, end: 20110106

REACTIONS (4)
  - GASTROINTESTINAL HAEMORRHAGE [None]
  - GASTRIC HAEMORRHAGE [None]
  - MELAENA [None]
  - THROMBOSIS [None]
